FAERS Safety Report 10599407 (Version 1)
Quarter: 2014Q4

REPORT INFORMATION
  Report Type: Spontaneous
  Country: US (occurrence: US)
  Receive Date: 20141121
  Receipt Date: 20141121
  Transmission Date: 20150529
  Serious: Yes (Other)
  Sender: FDA-Public Use
  Company Number: US-GLAXOSMITHKLINE-US2014GSK024916

PATIENT
  Sex: Male

DRUGS (2)
  1. ROSIGLITAZONE [Suspect]
     Active Substance: ROSIGLITAZONE
     Indication: DIABETES MELLITUS
     Dosage: 08 MG, UNK
     Route: 048
     Dates: start: 20051027, end: 20070629
  2. AVANDIA [Suspect]
     Active Substance: ROSIGLITAZONE MALEATE
     Indication: DIABETES MELLITUS
     Dosage: 08 MG, QD
     Route: 048
     Dates: start: 20050929, end: 2007

REACTIONS (3)
  - Myocardial infarction [Unknown]
  - Aortic arteriosclerosis [Unknown]
  - Coronary artery disease [Unknown]
